FAERS Safety Report 11747265 (Version 1)
Quarter: 2015Q4

REPORT INFORMATION
  Report Type: Spontaneous
  Country: None (occurrence: US)
  Receive Date: 20151117
  Receipt Date: 20151117
  Transmission Date: 20160304
  Serious: No
  Sender: FDA-Public Use
  Company Number: US-MEDAC PHARMA, INC.-1044298

PATIENT
  Age: 71 Year
  Sex: Female

DRUGS (2)
  1. RASUVO [Suspect]
     Active Substance: METHOTREXATE SODIUM
     Indication: RHEUMATOID ARTHRITIS
  2. REMICADE [Concomitant]
     Active Substance: INFLIXIMAB

REACTIONS (5)
  - Rheumatoid arthritis [Unknown]
  - Anger [Unknown]
  - Malaise [Unknown]
  - Pain [Unknown]
  - Device issue [Unknown]
